FAERS Safety Report 19736969 (Version 1)
Quarter: 2021Q3

REPORT INFORMATION
  Report Type: Report from Study
  Country: US (occurrence: US)
  Receive Date: 20210823
  Receipt Date: 20210823
  Transmission Date: 20211014
  Serious: Yes (Other)
  Sender: FDA-Public Use
  Company Number: US-SA-2021SA267605

PATIENT
  Age: 59 Year
  Sex: Female

DRUGS (2)
  1. SOLU?MEDROL [Concomitant]
     Active Substance: METHYLPREDNISOLONE SODIUM SUCCINATE
     Dosage: UNK
     Route: 042
  2. TERIFLUNOMIDE. [Suspect]
     Active Substance: TERIFLUNOMIDE
     Indication: MULTIPLE SCLEROSIS
     Dosage: 14 MG, QD
     Route: 048
     Dates: start: 20210803

REACTIONS (7)
  - Multiple sclerosis relapse [Not Recovered/Not Resolved]
  - Condition aggravated [Unknown]
  - Eye pain [Not Recovered/Not Resolved]
  - Burning sensation [Unknown]
  - Ocular hyperaemia [Not Recovered/Not Resolved]
  - Optic neuritis [Unknown]
  - Visual impairment [Recovering/Resolving]

NARRATIVE: CASE EVENT DATE: 2021
